FAERS Safety Report 5872231-5 (Version None)
Quarter: 2008Q3

REPORT INFORMATION
  Report Type: 
  Country: None (occurrence: None)
  Receive Date: 20080905
  Receipt Date: 20080825
  Transmission Date: 20090109
  Serious: Yes (Hospitalization)
  Sender: FDA-Public Use
  Company Number: DE-ROCHE-582889

PATIENT
  Sex: Female

DRUGS (2)
  1. PEGASYS [Suspect]
     Route: 058
     Dates: start: 20080317
  2. COPEGUS [Suspect]
     Dosage: NAME REPORTED - COPEGUS 200 MG FILMTABLETTEN
     Route: 048
     Dates: start: 20080317

REACTIONS (4)
  - ASTHENIA [None]
  - DIARRHOEA [None]
  - EASTERN COOPERATIVE ONCOLOGY GROUP PERFORMANCE STATUS WORSENED [None]
  - VOMITING [None]
